FAERS Safety Report 5200101-4 (Version None)
Quarter: 2007Q1

REPORT INFORMATION
  Report Type: 
  Country: None (occurrence: None)
  Receive Date: 20070105
  Receipt Date: 20061229
  Transmission Date: 20070707
  Serious: Yes (Hospitalization)
  Sender: FDA-Public Use
  Company Number: JP-JPN-A200605254

PATIENT
  Age: 74 Year
  Sex: Male
  Weight: 53 kg

DRUGS (8)
  1. PAXIL [Suspect]
     Indication: OBSESSIVE-COMPULSIVE DISORDER
     Dosage: 20MG PER DAY
     Route: 048
     Dates: start: 20061201, end: 20061205
  2. NELBON [Concomitant]
     Indication: INSOMNIA
     Dosage: 10MG PER DAY
     Route: 048
  3. AMOBAN [Concomitant]
     Indication: INSOMNIA
     Dosage: 7.5MG PER DAY
     Route: 048
  4. FOIPAN [Concomitant]
     Dosage: 600MG PER DAY
     Route: 048
     Dates: start: 20061213
  5. GASTER [Concomitant]
     Dosage: 40MG PER DAY
     Route: 065
     Dates: start: 20061213
  6. HARNAL [Concomitant]
     Dosage: .2MG PER DAY
     Route: 048
  7. EVIPROSTAT [Concomitant]
     Route: 048
  8. FK [Concomitant]
     Dosage: 3.9G PER DAY
     Route: 048

REACTIONS (7)
  - BLOOD SODIUM DECREASED [None]
  - DEPRESSED LEVEL OF CONSCIOUSNESS [None]
  - INAPPROPRIATE ANTIDIURETIC HORMONE SECRETION [None]
  - LOSS OF CONSCIOUSNESS [None]
  - SPECIFIC GRAVITY URINE INCREASED [None]
  - URINE SODIUM INCREASED [None]
  - YAWNING [None]
